FAERS Safety Report 12880496 (Version 1)
Quarter: 2016Q4

REPORT INFORMATION
  Report Type: Spontaneous
  Country: US (occurrence: US)
  Receive Date: 20161025
  Receipt Date: 20161025
  Transmission Date: 20170207
  Serious: No
  Sender: FDA-Public Use
  Company Number: US-BAUSCH-BL-2015-021293

PATIENT
  Sex: Female
  Weight: 44.34 kg

DRUGS (2)
  1. ATIVAN [Suspect]
     Active Substance: LORAZEPAM
     Route: 065
  2. ATIVAN [Suspect]
     Active Substance: LORAZEPAM
     Indication: PARTIAL SEIZURES
     Route: 065
     Dates: start: 20100509

REACTIONS (1)
  - Drug hypersensitivity [Unknown]
